FAERS Safety Report 7916990-6 (Version None)
Quarter: 2011Q4

REPORT INFORMATION
  Report Type: 
  Country: None (occurrence: None)
  Receive Date: 20111116
  Receipt Date: 20111116
  Transmission Date: 20120403
  Serious: Yes (Other)
  Sender: FDA-Public Use
  Company Number: None

PATIENT
  Age: 25 Year
  Sex: Male
  Weight: 88.45 kg

DRUGS (3)
  1. SINGULAIR [Suspect]
     Indication: ASTHMA
     Dosage: 1 TABLET
     Route: 048
     Dates: start: 20060515, end: 20111023
  2. CLARITIN [Concomitant]
     Route: 048
  3. MULTI-VITAMIN [Concomitant]
     Route: 048

REACTIONS (6)
  - INSOMNIA [None]
  - DYSPNOEA [None]
  - TABLET PHYSICAL ISSUE [None]
  - MALAISE [None]
  - EXTRASYSTOLES [None]
  - PALPITATIONS [None]
